FAERS Safety Report 12375627 (Version 1)
Quarter: 2016Q2

REPORT INFORMATION
  Report Type: Spontaneous
  Country: US (occurrence: None)
  Receive Date: 20160516
  Receipt Date: 20160516
  Transmission Date: 20160815
  Serious: Yes (Other)
  Sender: FDA-Public Use
  Company Number: None

PATIENT
  Age: 25 Year
  Sex: Female
  Weight: 99.79 kg

DRUGS (7)
  1. TYLENOL [Concomitant]
     Active Substance: ACETAMINOPHEN
  2. VIT C BOOSTER [Concomitant]
  3. IBUPROFEN. [Concomitant]
     Active Substance: IBUPROFEN
  4. WOMENS MULTI VITAMIN [Concomitant]
  5. CANNABIS [Concomitant]
     Active Substance: CANNABIS SATIVA SUBSP. INDICA TOP
  6. AROMATHERAPY [Concomitant]
  7. CEPHALEXIN 500MG, 500 MG [Suspect]
     Active Substance: CEPHALEXIN
     Indication: DRUG THERAPY
     Route: 048
     Dates: start: 20160511, end: 20160513

REACTIONS (5)
  - Blister [None]
  - Tongue blistering [None]
  - Gingival blister [None]
  - Oral mucosal blistering [None]
  - Pain [None]

NARRATIVE: CASE EVENT DATE: 20160513
